FAERS Safety Report 5934211-0 (Version None)
Quarter: 2008Q4

REPORT INFORMATION
  Report Type: 
  Country: None (occurrence: None)
  Receive Date: 20081028
  Receipt Date: 20081028
  Transmission Date: 20090506
  Serious: Yes (Life-Threatening, Hospitalization)
  Sender: FDA-Public Use
  Company Number: None

PATIENT
  Age: 48 Year
  Sex: Female
  Weight: 55.3388 kg

DRUGS (1)
  1. ENBREL [Suspect]
     Indication: BEHCET'S SYNDROME
     Dosage: 25MG SUB-Q INJECTION 2X WEEK SQ
     Route: 058

REACTIONS (12)
  - AMNESIA [None]
  - BRONCHOPULMONARY ASPERGILLOSIS [None]
  - CEREBRAL FUNGAL INFECTION [None]
  - DEHYDRATION [None]
  - FALL [None]
  - HEADACHE [None]
  - LOSS OF CONSCIOUSNESS [None]
  - MENTAL STATUS CHANGES [None]
  - NO THERAPEUTIC RESPONSE [None]
  - SEPTIC SHOCK [None]
  - SKIN LESION [None]
  - URINARY TRACT INFECTION [None]
